FAERS Safety Report 7669897-6 (Version None)
Quarter: 2011Q3

REPORT INFORMATION
  Report Type: 
  Country: None (occurrence: None)
  Receive Date: 20110808
  Receipt Date: 20110727
  Transmission Date: 20111222
  Serious: Yes (Other)
  Sender: FDA-Public Use
  Company Number: PHHY2011JP70007

PATIENT
  Sex: Male

DRUGS (3)
  1. GLEEVEC [Suspect]
     Route: 048
     Dates: start: 20100201, end: 20100402
  2. GLEEVEC [Suspect]
     Indication: CHRONIC MYELOID LEUKAEMIA
     Route: 048
     Dates: start: 20060301, end: 20091001
  3. SUTENT [Concomitant]
     Indication: LEIOMYOSARCOMA
     Route: 048
     Dates: start: 20091101, end: 20100201

REACTIONS (3)
  - CONDITION AGGRAVATED [None]
  - ILEUS [None]
  - LEIOMYOSARCOMA [None]
